FAERS Safety Report 14224750 (Version 1)
Quarter: 2017Q4

REPORT INFORMATION
  Report Type: Spontaneous
  Country: FR (occurrence: FR)
  Receive Date: 20171127
  Receipt Date: 20171127
  Transmission Date: 20180321
  Serious: Yes (Other)
  Sender: FDA-Public Use
  Company Number: FR-MERCK KGAA-2036006

PATIENT
  Age: 30 Year
  Sex: Female

DRUGS (1)
  1. NOVOTHYROX [Suspect]
     Active Substance: LEVOTHYROXINE SODIUM
     Indication: HYPOTHYROIDISM
     Route: 048
     Dates: start: 20170701, end: 20171018

REACTIONS (5)
  - Feeling drunk [Not Recovered/Not Resolved]
  - Abdominal distension [Not Recovered/Not Resolved]
  - Headache [Not Recovered/Not Resolved]
  - Vertigo [Recovering/Resolving]
  - Blood thyroid stimulating hormone normal [Not Recovered/Not Resolved]

NARRATIVE: CASE EVENT DATE: 20170801
